FAERS Safety Report 7658307-0 (Version None)
Quarter: 2011Q3

REPORT INFORMATION
  Report Type: 
  Country: None (occurrence: None)
  Receive Date: 20110802
  Receipt Date: 20110720
  Transmission Date: 20111222
  Serious: Yes (Hospitalization)
  Sender: FDA-Public Use
  Company Number: 2011AP001289

PATIENT
  Age: 62 Year
  Sex: Male

DRUGS (19)
  1. LEFLUNOMIDE [Suspect]
     Indication: RHEUMATOID ARTHRITIS
     Dosage: 20 MG; QD
     Dates: end: 20110527
  2. BEZAFIBRATE (BEZAFIBRATE) [Concomitant]
  3. GABAPENTIN [Concomitant]
  4. OMEPRAZOLE [Concomitant]
  5. PREDNISOLONE [Concomitant]
  6. ASPIRIN [Concomitant]
  7. NIFEDIPINE [Concomitant]
  8. ATENOLOL [Concomitant]
  9. NITROGLYCERIN [Concomitant]
  10. MEBEVERINE (MEBEVERINE) [Concomitant]
  11. ETANERCEPT (ETANERCEPT) [Concomitant]
  12. LISINOPRIL [Concomitant]
  13. CALCIUM CARBONATE [Concomitant]
  14. TRAMADOL HCL [Concomitant]
  15. WARFARIN SODIUM [Concomitant]
  16. VITAMIN D3 (COLELCALCIFEROL) [Concomitant]
  17. COLECALCIFEROL (COLECALCIFEROL) [Concomitant]
  18. FOLIC ACID [Concomitant]
  19. PRAVASTATIN [Concomitant]

REACTIONS (7)
  - NEUTROPENIC SEPSIS [None]
  - PLATELET COUNT DECREASED [None]
  - FEBRILE NEUTROPENIA [None]
  - PANCYTOPENIA [None]
  - BONE MARROW TOXICITY [None]
  - ANAEMIA [None]
  - RECTAL HAEMORRHAGE [None]
